FAERS Safety Report 4907767-4 (Version None)
Quarter: 2006Q1

REPORT INFORMATION
  Report Type: 
  Country: None (occurrence: None)
  Receive Date: 20060208
  Receipt Date: 20060208
  Transmission Date: 20060701
  Serious: Yes (Hospitalization)
  Sender: FDA-Public Use
  Company Number: None

PATIENT
  Age: 80 Year
  Sex: Male

DRUGS (12)
  1. GLYBURIDE [Suspect]
     Indication: DIABETES MELLITUS NON-INSULIN-DEPENDENT
     Dosage: 5MG BID
     Dates: start: 19960401
  2. POTASSIUM CHLORIDE [Concomitant]
  3. FELODIPINE [Concomitant]
  4. FINASTERIDE [Concomitant]
  5. SALSALATE [Concomitant]
  6. FUROSEMIDE [Concomitant]
  7. DONEPEZIL HCL [Concomitant]
  8. SENNOKOT [Concomitant]
  9. FLOMAX [Concomitant]
  10. METOPROLOL [Concomitant]
  11. BACLOFEN [Concomitant]
  12. ASPIRIN [Concomitant]

REACTIONS (2)
  - HYPOGLYCAEMIA [None]
  - MENTAL STATUS CHANGES [None]
